FAERS Safety Report 15997836 (Version 2)
Quarter: 2019Q1

REPORT INFORMATION
  Report Type: Spontaneous
  Country: DE (occurrence: DE)
  Receive Date: 20190222
  Receipt Date: 20190306
  Transmission Date: 20190418
  Serious: Yes (Hospitalization)
  Sender: FDA-Public Use
  Company Number: DE-BIOGEN-2019BI00700043

PATIENT
  Age: 50 Year
  Sex: Female

DRUGS (4)
  1. PANTOPRAZOL - 1A PHARMA 20 MG MAGENSAFTRESISTENTE TABLETTEN [Concomitant]
     Indication: PRODUCT USED FOR UNKNOWN INDICATION
     Dosage: AS NECESSARY
     Route: 048
  2. AVONEX [Suspect]
     Active Substance: INTERFERON BETA-1A
     Indication: MULTIPLE SCLEROSIS
     Dosage: MORE THAN 12 YEARS
     Route: 030
  3. IBUFLAM 600MG LICHTENSTEIN [Concomitant]
     Active Substance: IBUPROFEN
     Indication: PRODUCT USED FOR UNKNOWN INDICATION
     Dosage: AS NECESSARY
     Route: 048
  4. DEKRISTOL 20000 I.E. [Concomitant]
     Indication: PRODUCT USED FOR UNKNOWN INDICATION
     Dosage: MORE THAN 12 YEARS
     Route: 048

REACTIONS (3)
  - Injection site abscess [Not Recovered/Not Resolved]
  - Tissue irritation [Not Recovered/Not Resolved]
  - Injection site erythema [Not Recovered/Not Resolved]

NARRATIVE: CASE EVENT DATE: 201901
